FAERS Safety Report 8896158 (Version 2)
Quarter: 2017Q1

REPORT INFORMATION
  Report Type: Report from Study
  Country: US (occurrence: US)
  Receive Date: 20121108
  Receipt Date: 20170227
  Transmission Date: 20170429
  Serious: Yes (Other)
  Sender: FDA-Public Use
  Company Number: US-ROCHE-1152751

PATIENT
  Age: 57 Year
  Sex: Female
  Weight: 99 kg

DRUGS (3)
  1. PEG-INTERFERON ALFA 2A [Suspect]
     Active Substance: PEGINTERFERON ALFA-2A
     Indication: CHRONIC HEPATITIS C
     Dosage: DATE OF MOST RECENT DOSE: 26/OCT/2012
     Route: 065
     Dates: start: 20121005
  2. RIBAVIRIN. [Suspect]
     Active Substance: RIBAVIRIN
     Indication: CHRONIC HEPATITIS C
     Dosage: DATE OF MOST RECENT DOSE: 02/NOV/2012
     Route: 065
     Dates: start: 20121005
  3. TELAPREVIR [Suspect]
     Active Substance: TELAPREVIR
     Indication: CHRONIC HEPATITIS C
     Dosage: DATE OF MOST RECENT DOSE: 02/NOV/2012
     Route: 065
     Dates: start: 20121005

REACTIONS (5)
  - Presyncope [Recovered/Resolved with Sequelae]
  - Neutropenia [Recovered/Resolved]
  - Renal failure [Recovered/Resolved]
  - Diabetes mellitus [Not Recovered/Not Resolved]
  - Anaemia [Not Recovered/Not Resolved]

NARRATIVE: CASE EVENT DATE: 20121017
